FAERS Safety Report 8863327 (Version 3)
Quarter: 2012Q4

REPORT INFORMATION
  Report Type: Report from Study
  Country: US (occurrence: US)
  Receive Date: 20121025
  Receipt Date: 20121115
  Transmission Date: 20130627
  Serious: Yes (Hospitalization)
  Sender: FDA-Public Use
  Company Number: US-EISAI INC-E7389-03147-CLI-US

PATIENT
  Age: 39 Year
  Sex: Female
  Weight: 100 kg

DRUGS (8)
  1. HALAVEN [Suspect]
     Indication: BREAST CANCER
     Route: 041
     Dates: start: 20120806, end: 20120926
  2. HALAVEN [Suspect]
     Dosage: UNKNOWN
     Route: 041
     Dates: start: 20121016
  3. RAMUCIRUMAB [Suspect]
     Indication: BREAST CANCER
     Route: 041
     Dates: start: 20120806, end: 20120926
  4. RAMUCIRUMAB [Suspect]
     Dosage: UNKNOWN
     Route: 041
     Dates: start: 20121016
  5. AMLODIPINE [Concomitant]
     Dates: start: 20120827
  6. VENLAFAXINE [Concomitant]
     Dates: start: 20120831
  7. HYDROCHLOROTHIAZIDE [Concomitant]
  8. VITAMIN D3 [Concomitant]

REACTIONS (2)
  - Bacteraemia [Recovered/Resolved]
  - Cellulitis [Recovered/Resolved]
